FAERS Safety Report 19141695 (Version 10)
Quarter: 2022Q1

REPORT INFORMATION
  Report Type: Spontaneous
  Country: US (occurrence: US)
  Receive Date: 20210415
  Receipt Date: 20220223
  Transmission Date: 20220424
  Serious: Yes (Other)
  Sender: FDA-Public Use
  Company Number: US-PFIZER INC-2021382122

PATIENT
  Age: 57 Year
  Sex: Female

DRUGS (2)
  1. XELJANZ [Suspect]
     Active Substance: TOFACITINIB CITRATE
     Dosage: 5 MG, 2X/DAY
  2. XELJANZ [Suspect]
     Active Substance: TOFACITINIB CITRATE
     Dosage: 5 MG (COULD ONLY TAKE THE 5MG)

REACTIONS (22)
  - Joint swelling [Unknown]
  - Joint lock [Unknown]
  - Renal failure [Unknown]
  - Autoimmune myositis [Unknown]
  - Acute kidney injury [Unknown]
  - Chest injury [Unknown]
  - Hip fracture [Unknown]
  - Rib fracture [Unknown]
  - Mental impairment [Unknown]
  - Bone disorder [Unknown]
  - Movement disorder [Unknown]
  - Arthritis [Unknown]
  - Swelling [Unknown]
  - Pain [Unknown]
  - Musculoskeletal chest pain [Unknown]
  - Alopecia [Unknown]
  - Bedridden [Unknown]
  - Sinusitis [Unknown]
  - Back disorder [Unknown]
  - Musculoskeletal stiffness [Unknown]
  - Peripheral swelling [Unknown]
  - Infection [Unknown]

NARRATIVE: CASE EVENT DATE: 20210101
